FAERS Safety Report 24034459 (Version 1)
Quarter: 2024Q2

REPORT INFORMATION
  Report Type: Spontaneous
  Country: US (occurrence: None)
  Receive Date: 20240628
  Receipt Date: 20240628
  Transmission Date: 20240716
  Serious: Yes (Other)
  Sender: FDA-Public Use
  Company Number: None

PATIENT
  Age: 48 Year
  Sex: Male

DRUGS (5)
  1. AMBRISENTAN [Suspect]
     Active Substance: AMBRISENTAN
     Indication: Pulmonary arterial hypertension
     Dosage: FREQUENCY : DAILY;?
     Route: 048
     Dates: start: 20240425
  2. SILDENAFIL [Concomitant]
     Active Substance: SILDENAFIL
  3. COLCHICINE [Concomitant]
     Active Substance: COLCHICINE
  4. FLONASE [Concomitant]
     Active Substance: FLUTICASONE PROPIONATE
  5. NIFEDIPINE TOPOINT [Concomitant]

REACTIONS (2)
  - Upper respiratory tract infection [None]
  - Laryngitis [None]

NARRATIVE: CASE EVENT DATE: 20240624
